FAERS Safety Report 7202479-9 (Version None)
Quarter: 2010Q4

REPORT INFORMATION
  Report Type: 
  Country: None (occurrence: None)
  Receive Date: 20101229
  Receipt Date: 20101220
  Transmission Date: 20110411
  Serious: Yes (Death)
  Sender: FDA-Public Use
  Company Number: B0690841A

PATIENT
  Sex: Female
  Weight: 54 kg

DRUGS (2)
  1. ALKERAN [Suspect]
     Indication: STEM CELL TRANSPLANT
     Dosage: 100MG PER DAY
     Route: 042
     Dates: start: 20041021, end: 20041022
  2. GRAN [Concomitant]
     Dates: start: 20041030, end: 20041102

REACTIONS (1)
  - SEPSIS [None]
